FAERS Safety Report 6258855-4 (Version None)
Quarter: 2009Q3

REPORT INFORMATION
  Report Type: 
  Country: None (occurrence: None)
  Receive Date: 20090702
  Receipt Date: 20090619
  Transmission Date: 20100115
  Serious: Yes (Hospitalization)
  Sender: FDA-Public Use
  Company Number: 2008AL008759 (2)

PATIENT
  Age: 73 Year
  Sex: Female

DRUGS (27)
  1. DIGOXIN [Suspect]
     Dosage: 0.25MG, DAILY, PO
     Route: 048
     Dates: start: 20041128, end: 20080401
  2. SINGULAIR [Concomitant]
  3. GLIPIZIDE [Concomitant]
  4. LEVOTHYROXINE SODIUM [Concomitant]
  5. OMERPRAZOLE [Concomitant]
  6. CARTIA XT [Concomitant]
  7. FOSAMAX [Concomitant]
  8. CICLOPIROX [Concomitant]
  9. ADVAIR HFA [Concomitant]
  10. NAPROXEN [Concomitant]
  11. FUROSEMIDE [Concomitant]
  12. ALBUTEROL [Concomitant]
  13. PRILOSEC [Concomitant]
  14. METFORMIN HCL [Concomitant]
  15. IPRATROPIUM BROMIDE [Concomitant]
  16. ACTONEL [Concomitant]
  17. PROTONIX [Concomitant]
  18. QUININE SULFATE [Concomitant]
  19. PREDNISONE TAB [Concomitant]
  20. OMNICEF [Concomitant]
  21. SPIRIVA [Concomitant]
  22. SIMVASTATIN [Concomitant]
  23. LISINOPRIL [Concomitant]
  24. NYSTATIN [Concomitant]
  25. SOTANOL [Concomitant]
  26. AMLODIPINE [Concomitant]
  27. PANTOPRAZOLE SODIUM [Concomitant]

REACTIONS (19)
  - ABDOMINAL PAIN UPPER [None]
  - ACTIVITIES OF DAILY LIVING IMPAIRED [None]
  - ATRIAL FIBRILLATION [None]
  - CARDIAC FAILURE [None]
  - CHRONIC OBSTRUCTIVE PULMONARY DISEASE [None]
  - COUGH [None]
  - DIZZINESS [None]
  - DYSPNOEA [None]
  - FATIGUE [None]
  - FEAR [None]
  - FEAR OF DEATH [None]
  - HYPOTENSION [None]
  - INJURY [None]
  - MALAISE [None]
  - NAUSEA [None]
  - OEDEMA PERIPHERAL [None]
  - PAIN [None]
  - PALPITATIONS [None]
  - VOMITING [None]
